FAERS Safety Report 9848921 (Version 1)
Quarter: 2014Q1

REPORT INFORMATION
  Report Type: Spontaneous
  Country: US (occurrence: None)
  Receive Date: 20140127
  Receipt Date: 20140127
  Transmission Date: 20141002
  Serious: Yes (Hospitalization)
  Sender: FDA-Public Use
  Company Number: None

PATIENT
  Age: 8 Year
  Sex: Male
  Weight: 27.67 kg

DRUGS (2)
  1. PREVACID 24 HR [Suspect]
     Indication: GASTROOESOPHAGEAL REFLUX DISEASE
     Dosage: TAKEN BY MOUTH
     Dates: start: 20140116, end: 20140121
  2. PEPCID COMPLETE [Suspect]
     Indication: GASTROOESOPHAGEAL REFLUX DISEASE
     Dosage: TAKEN BY MOUTH
     Dates: start: 20140116, end: 20140121

REACTIONS (10)
  - Eye movement disorder [None]
  - Abdominal pain upper [None]
  - Dyskinesia [None]
  - Retching [None]
  - Speech disorder [None]
  - Burning sensation [None]
  - Tremor [None]
  - Confusional state [None]
  - Hepatosplenomegaly [None]
  - Convulsion [None]
